FAERS Safety Report 8824570 (Version 1)
Quarter: 2012Q4

REPORT INFORMATION
  Report Type: 
  Country: US (occurrence: US)
  Receive Date: 20121004
  Receipt Date: 20121004
  Transmission Date: 20130627
  Serious: No
  Sender: FDA-Public Use
  Company Number: US-009507513-1210USA001675

PATIENT
  Age: 20 Year
  Sex: Female

DRUGS (2)
  1. NEXPLANON [Suspect]
     Indication: CONTRACEPTION
     Dosage: 1 rod in left arm
     Dates: start: 20120928, end: 20120929
  2. GLUCOPHAGE [Concomitant]

REACTIONS (2)
  - Implant site haemorrhage [Recovering/Resolving]
  - Device expulsion [Unknown]
